FAERS Safety Report 5156868-7 (Version None)
Quarter: 2006Q4

REPORT INFORMATION
  Report Type: 
  Country: None (occurrence: None)
  Receive Date: 20061115
  Receipt Date: 20061110
  Transmission Date: 20070319
  Serious: Yes (Hospitalization)
  Sender: FDA-Public Use
  Company Number: 006#3#2006-00074

PATIENT
  Age: 66 Year
  Sex: Male

DRUGS (6)
  1. ISOSORBIDE DINITRATE [Suspect]
     Dosage: SUBLINGUAL
     Route: 060
     Dates: start: 20051228, end: 20060502
  2. NOCTRAN (ACEPROMAZINE, ACEPROMETAZINE, CLORAZEPATE DIPOTASSIUM) [Concomitant]
  3. XANAX [Concomitant]
  4. PERINDOPRIL ERBUMINE [Concomitant]
  5. NICARDIPINE HYDROCHLORIDE [Concomitant]
  6. PROZAC [Concomitant]

REACTIONS (12)
  - ASTHENIA [None]
  - BLOOD CREATINE INCREASED [None]
  - BRADYPHRENIA [None]
  - CARDIOMYOPATHY [None]
  - CONDITION AGGRAVATED [None]
  - CYTOLYTIC HEPATITIS [None]
  - DISSEMINATED INTRAVASCULAR COAGULATION [None]
  - FALL [None]
  - HAEMATOMA [None]
  - HEPATIC FAILURE [None]
  - NERVOUS SYSTEM DISORDER [None]
  - RHABDOMYOLYSIS [None]
